FAERS Safety Report 21842577 (Version 1)
Quarter: 2023Q1

REPORT INFORMATION
  Report Type: Spontaneous
  Country: US (occurrence: US)
  Receive Date: 20230110
  Receipt Date: 20230110
  Transmission Date: 20230417
  Serious: No
  Sender: FDA-Public Use
  Company Number: US-SANOFI-01427969

PATIENT
  Sex: Female

DRUGS (3)
  1. MULTAQ [Suspect]
     Active Substance: DRONEDARONE
     Indication: Atrial tachycardia
     Dosage: 400MG, BID, 400 MG BID AND DRUG TREATMENT DURATION:SHE STARTED MULTAQ ON FRIDAY
  2. DILTIAZEM [Concomitant]
     Active Substance: DILTIAZEM
  3. ZOLPIDEM [Concomitant]
     Active Substance: ZOLPIDEM TARTRATE
     Indication: Sleep disorder

REACTIONS (3)
  - Sleep disorder [Unknown]
  - Palpitations [Unknown]
  - Drug ineffective [Unknown]
